FAERS Safety Report 4742123-3 (Version None)
Quarter: 2005Q3

REPORT INFORMATION
  Report Type: 
  Country: None (occurrence: None)
  Receive Date: 20050810
  Receipt Date: 20050810
  Transmission Date: 20060218
  Serious: Yes (Hospitalization)
  Sender: FDA-Public Use
  Company Number: None

PATIENT
  Sex: Male
  Weight: 92.5338 kg

DRUGS (24)
  1. NPH 18 UNITS BID [Suspect]
     Indication: DIABETES MELLITUS
     Dates: start: 20050114, end: 20050424
  2. REG INSULIN UNITS AM [Suspect]
  3. SULFAMETHOXAZOLE 400/ TRIMETH [Concomitant]
  4. ASPIRIN [Concomitant]
  5. ALPRAZOLAM [Concomitant]
  6. BUSPIRONE HCL [Concomitant]
  7. OLANZAPINE [Concomitant]
  8. METOPOLOL TARTRATE [Concomitant]
  9. ACCU-CHECK COMFORT CV (GLUCOSE ) TEST STRIP [Concomitant]
  10. DOCUSATE CA [Concomitant]
  11. OMEPRAZOLE [Concomitant]
  12. PREDNISONE [Concomitant]
  13. FLUDROCORTISONE ACETATE [Concomitant]
  14. HUMULIN N [Concomitant]
  15. HUMULIN R [Concomitant]
  16. GLIPIZIDE [Concomitant]
  17. SYNTHROID [Concomitant]
  18. MAGNESIUM OXIDE [Concomitant]
  19. POTASSIUM PHOSPHATES [Concomitant]
  20. FOLIC ACID [Concomitant]
  21. ALCOHOL PREP PAD [Concomitant]
  22. INSULIN SYRINGE [Concomitant]
  23. LANCET, TECHLITE [Concomitant]
  24. CHLORPHENIRAMINE MALEATE [Concomitant]

REACTIONS (2)
  - HYPOGLYCAEMIA [None]
  - LOSS OF CONSCIOUSNESS [None]
